FAERS Safety Report 22118670 (Version 1)
Quarter: 2023Q1

REPORT INFORMATION
  Report Type: Spontaneous
  Country: FR (occurrence: FR)
  Receive Date: 20230321
  Receipt Date: 20230321
  Transmission Date: 20230418
  Serious: Yes (Other)
  Sender: FDA-Public Use
  Company Number: None

PATIENT
  Age: 69 Year
  Sex: Female

DRUGS (1)
  1. ELTROMBOPAG OLAMINE [Suspect]
     Active Substance: ELTROMBOPAG OLAMINE
     Indication: Thrombocytopenia
     Dosage: 225 MG, QD (3/JOUR)
     Route: 048
     Dates: start: 20221207

REACTIONS (4)
  - Melanoderma [Not Recovered/Not Resolved]
  - Conjunctival discolouration [Not Recovered/Not Resolved]
  - Chromaturia [Not Recovered/Not Resolved]
  - Serum colour abnormal [Not Recovered/Not Resolved]

NARRATIVE: CASE EVENT DATE: 20230106
